FAERS Safety Report 5354433-X (Version None)
Quarter: 2007Q2

REPORT INFORMATION
  Report Type: 
  Country: None (occurrence: None)
  Receive Date: 20070612
  Receipt Date: 20070611
  Transmission Date: 20071010
  Serious: Yes (Other)
  Sender: FDA-Public Use
  Company Number: US-BRISTOL-MYERS SQUIBB COMPANY-13810148

PATIENT
  Age: 70 Year
  Sex: Male

DRUGS (4)
  1. CEFAZOLIN [Suspect]
  2. WARFARIN SODIUM [Suspect]
  3. CEFTRIAXONE [Suspect]
  4. PIPERACILLIN [Suspect]

REACTIONS (7)
  - BACTERAEMIA [None]
  - COAGULOPATHY [None]
  - DRUG SPECIFIC ANTIBODY PRESENT [None]
  - HAEMOLYSIS [None]
  - HAEMOLYTIC ANAEMIA [None]
  - PERICARDIAL EFFUSION [None]
  - WOUND [None]
